FAERS Safety Report 10376037 (Version 1)
Quarter: 2014Q3

REPORT INFORMATION
  Report Type: Spontaneous
  Country: US (occurrence: US)
  Receive Date: 20140811
  Receipt Date: 20140811
  Transmission Date: 20150326
  Serious: Yes (Other)
  Sender: FDA-Public Use
  Company Number: US-GLAXOSMITHKLINE-A1083741A

PATIENT
  Age: 80 Year
  Sex: Female

DRUGS (3)
  1. CITALOPRAM [Concomitant]
     Active Substance: CITALOPRAM HYDROBROMIDE
  2. CLONAZEPAM. [Concomitant]
     Active Substance: CLONAZEPAM
  3. LAMICTAL [Suspect]
     Active Substance: LAMOTRIGINE
     Indication: BIPOLAR I DISORDER
     Dosage: 300MG PER DAY
     Route: 048
     Dates: start: 2007

REACTIONS (4)
  - Arthritis [Unknown]
  - Knee arthroplasty [Not Recovered/Not Resolved]
  - Arthropathy [Unknown]
  - Therapeutic response changed [Unknown]
